FAERS Safety Report 22068502 (Version 1)
Quarter: 2023Q1

REPORT INFORMATION
  Report Type: Spontaneous
  Country: CN (occurrence: None)
  Receive Date: 20230307
  Receipt Date: 20230307
  Transmission Date: 20230418
  Serious: Yes (Other)
  Sender: FDA-Public Use
  Company Number: CN-ROCHE-3298936

PATIENT
  Sex: Female

DRUGS (6)
  1. CAPECITABINE [Suspect]
     Active Substance: CAPECITABINE
     Indication: Breast cancer
     Route: 065
  2. CAPECITABINE [Suspect]
     Active Substance: CAPECITABINE
     Route: 048
     Dates: start: 20230218, end: 20230228
  3. HERCEPTIN [Suspect]
     Active Substance: TRASTUZUMAB
     Indication: Breast cancer
     Route: 041
  4. HERCEPTIN [Suspect]
     Active Substance: TRASTUZUMAB
     Route: 041
     Dates: start: 20230218, end: 20230218
  5. DOCETAXEL [Suspect]
     Active Substance: DOCETAXEL
     Indication: Breast cancer
     Route: 065
  6. DOCETAXEL [Suspect]
     Active Substance: DOCETAXEL
     Route: 041
     Dates: start: 20230218, end: 20230218

REACTIONS (4)
  - Asthenia [Recovering/Resolving]
  - Nausea [Recovering/Resolving]
  - Decreased appetite [Recovering/Resolving]
  - Myelosuppression [Unknown]

NARRATIVE: CASE EVENT DATE: 20230222
